FAERS Safety Report 8185244-8 (Version None)
Quarter: 2012Q1

REPORT INFORMATION
  Report Type: 
  Country: None (occurrence: None)
  Receive Date: 20120305
  Receipt Date: 20120224
  Transmission Date: 20120608
  Serious: Yes (Other)
  Sender: FDA-Public Use
  Company Number: PHHY2012PL016235

PATIENT
  Age: 52 Year
  Sex: Male

DRUGS (2)
  1. CHLORPROTHIXENE [Interacting]
     Dosage: 75 MG, PER DAY
  2. VENLAFAXINE [Suspect]
     Indication: DEPRESSION
     Dosage: 75 MG, DAY

REACTIONS (11)
  - SLEEP DISORDER [None]
  - INAPPROPRIATE ANTIDIURETIC HORMONE SECRETION [None]
  - RESTLESSNESS [None]
  - NAUSEA [None]
  - VOMITING [None]
  - BLOOD OSMOLARITY DECREASED [None]
  - ALTERED STATE OF CONSCIOUSNESS [None]
  - HYPONATRAEMIA [None]
  - DRUG INTERACTION [None]
  - AGITATION [None]
  - URINE OSMOLARITY INCREASED [None]
